FAERS Safety Report 6939621-0 (Version None)
Quarter: 2010Q3

REPORT INFORMATION
  Report Type: 
  Country: None (occurrence: None)
  Receive Date: 20100824
  Receipt Date: 20100810
  Transmission Date: 20110219
  Serious: Yes (Hospitalization, Other)
  Sender: FDA-Public Use
  Company Number: GB-MYLANLABS-2010S1014692

PATIENT
  Age: 35 Year
  Sex: Male

DRUGS (11)
  1. LANSOPRAZOLE [Suspect]
     Indication: PRODUCT USED FOR UNKNOWN INDICATION
  2. RISPERIDONE [Suspect]
     Indication: PRODUCT USED FOR UNKNOWN INDICATION
     Route: 048
  3. ZOPICLONE [Suspect]
     Indication: PRODUCT USED FOR UNKNOWN INDICATION
  4. ALCOHOL [Suspect]
     Indication: PRODUCT USED FOR UNKNOWN INDICATION
  5. AMPHETAMINE SULFATE [Suspect]
     Indication: PRODUCT USED FOR UNKNOWN INDICATION
  6. COCAINE [Suspect]
     Indication: PRODUCT USED FOR UNKNOWN INDICATION
  7. DICLOFENAC [Suspect]
     Indication: PRODUCT USED FOR UNKNOWN INDICATION
  8. METHADONE [Suspect]
     Indication: PRODUCT USED FOR UNKNOWN INDICATION
  9. RISPERDAL CONSTA [Suspect]
     Indication: SCHIZOPHRENIA
     Route: 030
     Dates: end: 20100617
  10. TETRABENAZINE [Suspect]
     Indication: PRODUCT USED FOR UNKNOWN INDICATION
  11. AGOMELATINE [Suspect]
     Indication: PRODUCT USED FOR UNKNOWN INDICATION

REACTIONS (2)
  - ELECTROCARDIOGRAM ABNORMAL [None]
  - MULTIPLE DRUG OVERDOSE INTENTIONAL [None]
